FAERS Safety Report 10082523 (Version 1)
Quarter: 2014Q2

REPORT INFORMATION
  Report Type: Spontaneous
  Country: US (occurrence: US)
  Receive Date: 20140416
  Receipt Date: 20140416
  Transmission Date: 20141212
  Serious: No
  Sender: FDA-Public Use
  Company Number: US-BIOGENIDEC-2014BI034590

PATIENT
  Sex: 0

DRUGS (1)
  1. AVONEX [Suspect]
     Indication: MULTIPLE SCLEROSIS
     Route: 030
     Dates: start: 20121127

REACTIONS (6)
  - Nasopharyngitis [Unknown]
  - Memory impairment [Unknown]
  - Sensory disturbance [Unknown]
  - Malaise [Unknown]
  - Anxiety [Unknown]
  - Feeling abnormal [Unknown]
